FAERS Safety Report 10157261 (Version 2)
Quarter: 2014Q2

REPORT INFORMATION
  Report Type: Spontaneous
  Country: US (occurrence: US)
  Receive Date: 20140507
  Receipt Date: 20140527
  Transmission Date: 20141212
  Serious: Yes (Hospitalization, Disabling, Other)
  Sender: FDA-Public Use
  Company Number: US-BAYER-2014-064589

PATIENT
  Age: 29 Year
  Sex: Female

DRUGS (4)
  1. YASMIN [Suspect]
  2. YAZ [Suspect]
  3. PROTONIX [Concomitant]
  4. Z-PAK [Concomitant]

REACTIONS (10)
  - Intracardiac thrombus [None]
  - Cholecystitis chronic [None]
  - Pulmonary embolism [None]
  - Venous thrombosis limb [Recovering/Resolving]
  - Injury [None]
  - Pain [None]
  - Emotional distress [None]
  - Anxiety [None]
  - Fear of disease [None]
  - Pain [None]
